FAERS Safety Report 15561547 (Version 1)
Quarter: 2018Q4

REPORT INFORMATION
  Report Type: Spontaneous
  Country: CH (occurrence: CH)
  Receive Date: 20181029
  Receipt Date: 20181029
  Transmission Date: 20190205
  Serious: Yes (Life-Threatening, Other)
  Sender: FDA-Public Use
  Company Number: CH-PFIZER INC-2018437269

PATIENT
  Age: 69 Year
  Sex: Female
  Weight: 72 kg

DRUGS (17)
  1. BELOC ZOK [Concomitant]
     Active Substance: METOPROLOL SUCCINATE
     Dosage: 12.5 MG, 1X/DAY
     Route: 048
     Dates: start: 2017
  2. NOOTROPIL [Concomitant]
     Active Substance: PIRACETAM
     Dosage: 8000 MG, 3X/DAY
     Route: 048
     Dates: start: 2017
  3. ATROPINE SULFATE. [Concomitant]
     Active Substance: ATROPINE SULFATE
     Dosage: 0.25 MG, 5X/DAY (VARIABLE DOSAGES)
     Route: 048
     Dates: start: 201806
  4. DAFALGAN [Concomitant]
     Active Substance: ACETAMINOPHEN
     Dosage: 1000 MG, AS NEEDED (MAX. 3X/D; AS NECESSARY)
     Route: 048
  5. TAZOBAC [Suspect]
     Active Substance: PIPERACILLIN SODIUM\TAZOBACTAM SODIUM
     Indication: PNEUMONIA
     Dosage: 4.5 G, 3X/DAY
     Route: 041
     Dates: start: 20181005, end: 20181012
  6. MOVICOL [Concomitant]
     Active Substance: POLYETHYLENE GLYCOL 3350\POTASSIUM CHLORIDE\SODIUM BICARBONATE\SODIUM CHLORIDE
     Dosage: UNK, 1X/DAY (1 SACHET 1X/D)
     Route: 048
     Dates: start: 2017
  7. HALDOL [Concomitant]
     Active Substance: HALOPERIDOL
     Dosage: 0.5 MG, 2X/DAY (SUSPENDED SINCE 16OCT2018)
     Route: 048
     Dates: start: 2017, end: 20181016
  8. ASPIRINE-C [Concomitant]
     Dosage: 100 MG, 1X/DAY
     Route: 048
     Dates: start: 2017
  9. ATORVASTATINE [ATORVASTATIN CALCIUM] [Concomitant]
     Dosage: 40 MG, 1X/DAY
     Route: 048
     Dates: start: 2017
  10. MYSOLINE [Concomitant]
     Active Substance: PRIMIDONE
     Dosage: 500 MG, 2X/DAY
     Route: 048
     Dates: start: 2017
  11. REMERON [Concomitant]
     Active Substance: MIRTAZAPINE
     Dosage: 30 MG, 1X/DAY (SUSPENDED SINCE 16OCT2018)
     Route: 048
     Dates: start: 2017, end: 20181016
  12. NACL [Suspect]
     Active Substance: SODIUM CHLORIDE
     Indication: DEHYDRATION
     Dosage: 500 ML, 1X/DAY (START AND STOP DATE UNSPECIFIED, DURATION: SEVERAL DAYS)
     Route: 041
     Dates: start: 201810, end: 201810
  13. DEPAKINE CHRONO [Concomitant]
     Active Substance: VALPROATE SODIUM
     Dosage: 1800 MG, 2X/DAY
     Route: 048
     Dates: start: 2017
  14. SCOPODERM [HYOSCINE] [Concomitant]
     Dosage: 1.54 MG, 1X/DAY (SUSPENDED SINCE 16OCT2018)
     Route: 062
     Dates: start: 201808, end: 20181016
  15. LAXOBERON [Concomitant]
     Active Substance: SODIUM PICOSULFATE
     Dosage: 10 MG, AS NEEDED (MAX. 1X/D; AS NECESSARY)
     Route: 048
  16. TAZOBAC [Suspect]
     Active Substance: PIPERACILLIN SODIUM\TAZOBACTAM SODIUM
     Dosage: 4.5 G, SINGLE
     Route: 041
     Dates: start: 20181013
  17. CALCIMAGON D3 [Concomitant]
     Active Substance: CALCIUM\CHOLECALCIFEROL
     Dosage: 1X/DAY, CALCIMAGON-D3 FORTE 1000/800
     Route: 048
     Dates: start: 2017

REACTIONS (7)
  - Dyspnoea [Unknown]
  - Hypernatraemia [Recovered/Resolved]
  - Loss of consciousness [Unknown]
  - Hypokalaemia [Recovering/Resolving]
  - Somnolence [Unknown]
  - Metabolic alkalosis [Unknown]
  - Myocardial infarction [Recovered/Resolved]

NARRATIVE: CASE EVENT DATE: 20181008
